FAERS Safety Report 5259747-X (Version None)
Quarter: 2007Q1

REPORT INFORMATION
  Report Type: 
  Country: None (occurrence: None)
  Receive Date: 20061117
  Receipt Date: 20060519
  Transmission Date: 20070707
  Serious: Yes (Other)
  Sender: FDA-Public Use
  Company Number: US-JNJFOC-20060504724

PATIENT
  Age: 37 Year
  Sex: Male

DRUGS (2)
  1. LEVAQUIN [Suspect]
     Indication: DIVERTICULITIS
     Dosage: 500 MG, 1 IN 1 DAY, ORAL
     Route: 048
  2. FLAGYL [Concomitant]

REACTIONS (1)
  - NEUROPATHY PERIPHERAL [None]
